FAERS Safety Report 14848293 (Version 2)
Quarter: 2018Q4

REPORT INFORMATION
  Report Type: Spontaneous
  Country: GB (occurrence: GB)
  Receive Date: 20180504
  Receipt Date: 20181019
  Transmission Date: 20190204
  Serious: Yes (Death, Hospitalization, Other)
  Sender: FDA-Public Use
  Company Number: GB-DRREDDYS-USA/UKI/18/0098536

PATIENT
  Age: 63 Year
  Sex: Male

DRUGS (1)
  1. GEMCITABINE [Suspect]
     Active Substance: GEMCITABINE\GEMCITABINE HYDROCHLORIDE
     Indication: PANCREATIC CARCINOMA METASTATIC
     Dosage: NEAREST 38 MG AS 2,100 MG GIVEN ON DAY 1, 8, 15 ON A 28-DAY CYCLE, PLANNED FOR 6 CYCLES
     Route: 065

REACTIONS (6)
  - Cardiomyopathy [Recovering/Resolving]
  - Cardiotoxicity [Recovering/Resolving]
  - Cardiac failure congestive [Recovering/Resolving]
  - Anaemia [Unknown]
  - Thrombocytopenia [Unknown]
  - Acute kidney injury [Recovering/Resolving]
